FAERS Safety Report 6026083-3 (Version None)
Quarter: 2008Q4

REPORT INFORMATION
  Report Type: 
  Country: None (occurrence: None)
  Receive Date: 20081230
  Receipt Date: 20081218
  Transmission Date: 20090506
  Serious: Yes (Hospitalization)
  Sender: FDA-Public Use
  Company Number: ABX72-08-0480

PATIENT
  Age: 60 Year
  Sex: Male
  Weight: 81.1 kg

DRUGS (19)
  1. ABRAXANE [Suspect]
     Indication: HEAD AND NECK CANCER
     Dosage: (42 MG), INTRANEOUS
     Route: 042
     Dates: start: 20080922
  2. ERBITUX [Suspect]
     Indication: HEAD AND NECK CANCER
     Dosage: (844 MG), INTRAVENOUS
     Route: 042
     Dates: start: 20080915
  3. CARBOPLATIN [Suspect]
     Indication: HEAD AND NECK CANCER
     Dosage: (219 MG), INTRAVENOUS
     Route: 042
     Dates: start: 20080922
  4. ATIVAN [Concomitant]
  5. DECADRON [Concomitant]
  6. DIFLUCAN [Concomitant]
  7. FENTANYL-100 [Concomitant]
  8. FLONASE [Concomitant]
  9. KBL SOLUTION [Concomitant]
  10. LACTULOSE [Concomitant]
  11. OXYCODONE HCL [Concomitant]
  12. PRESERVISION (MINERAL SUPPLEMENTS) [Concomitant]
  13. PRILOSEC [Concomitant]
  14. REGLAN [Concomitant]
  15. ROBITUSSIN (GUAIFENESIN) [Concomitant]
  16. ROXICET [Concomitant]
  17. SENOKOT [Concomitant]
  18. ZOFRAN [Concomitant]
  19. KELEX (CEFALEXIN MONOHYDRATE) [Concomitant]

REACTIONS (7)
  - ASPIRATION [None]
  - CHOKING [None]
  - DYSPNOEA [None]
  - HAEMATOCRIT DECREASED [None]
  - HAEMOGLOBIN DECREASED [None]
  - TACHYCARDIA [None]
  - VOMITING [None]
